FAERS Safety Report 19770699 (Version 1)
Quarter: 2021Q3

REPORT INFORMATION
  Report Type: Spontaneous
  Country: SA (occurrence: SA)
  Receive Date: 20210901
  Receipt Date: 20210901
  Transmission Date: 20211014
  Serious: Yes (Other)
  Sender: FDA-Public Use
  Company Number: None

PATIENT
  Age: 32 Month
  Sex: Female
  Weight: 11.3 kg

DRUGS (2)
  1. FLEET ENEMA [Suspect]
     Active Substance: SODIUM PHOSPHATE, DIBASIC\SODIUM PHOSPHATE, MONOBASIC
     Indication: CONSTIPATION
     Dosage: ?          OTHER FREQUENCY:ONCE;?
     Route: 054
     Dates: start: 20210824, end: 20210824
  2. FLEET ENEMA [Concomitant]
     Active Substance: SODIUM PHOSPHATE, DIBASIC\SODIUM PHOSPHATE, MONOBASIC
     Dates: start: 20210824, end: 20210824

REACTIONS (2)
  - Blood phosphorus increased [None]
  - Incorrect dose administered [None]

NARRATIVE: CASE EVENT DATE: 20210824
